FAERS Safety Report 7381281-1 (Version None)
Quarter: 2011Q1

REPORT INFORMATION
  Report Type: 
  Country: None (occurrence: None)
  Receive Date: 20110329
  Receipt Date: 20100702
  Transmission Date: 20110831
  Serious: Yes (Other)
  Sender: FDA-Public Use
  Company Number: PHHY2010DE90808

PATIENT
  Sex: Female

DRUGS (2)
  1. CORTISONE [Concomitant]
  2. EXTAVIA [Suspect]
     Dates: start: 20100517

REACTIONS (13)
  - NASOPHARYNGITIS [None]
  - HYPOTONIA [None]
  - OPTIC NEURITIS [None]
  - HYPOKINESIA [None]
  - HYPERSENSITIVITY [None]
  - SNEEZING [None]
  - GAIT DISTURBANCE [None]
  - HYPOTENSION [None]
  - NIGHTMARE [None]
  - ANXIETY [None]
  - INFLUENZA LIKE ILLNESS [None]
  - DEPRESSION [None]
  - INJECTION SITE PAIN [None]
